FAERS Safety Report 5597463-5 (Version None)
Quarter: 2007Q4

REPORT INFORMATION
  Report Type: 
  Country: None (occurrence: None)
  Receive Date: 20071221
  Receipt Date: 20071010
  Transmission Date: 20080405
  Serious: No
  Sender: FDA-Public Use
  Company Number: SPV1-2007-04476

PATIENT
  Age: 10 Year
  Sex: Male

DRUGS (6)
  1. VYVANSE [Suspect]
     Indication: ATTENTION DEFICIT/HYPERACTIVITY DISORDER
     Dosage: 30 MG, 1X/DAY:QD, ORAL
     Route: 048
     Dates: start: 20071006, end: 20071009
  2. VYVANSE [Suspect]
     Indication: BIPOLAR I DISORDER
     Dosage: 30 MG, 1X/DAY:QD, ORAL
     Route: 048
     Dates: start: 20071006, end: 20071009
  3. CLONIDINE [Concomitant]
  4. RISPERDAL [Concomitant]
  5. STRATTERA [Concomitant]
  6. LORATADINE [Concomitant]

REACTIONS (5)
  - AFFECT LABILITY [None]
  - AGGRESSION [None]
  - ANGER [None]
  - INSOMNIA [None]
  - OFF LABEL USE [None]
